FAERS Safety Report 8716979 (Version 2)
Quarter: 2013Q1

REPORT INFORMATION
  Report Type: Spontaneous
  Country: US (occurrence: US)
  Receive Date: 20120810
  Receipt Date: 20130311
  Transmission Date: 20140127
  Serious: Yes (Hospitalization)
  Sender: FDA-Public Use
  Company Number: US-BAYER-2012-078623

PATIENT
  Age: 44 Year
  Sex: Female
  Weight: 77.1 kg

DRUGS (1)
  1. YASMIN [Suspect]
     Dosage: UNK
     Dates: start: 2000, end: 20040620

REACTIONS (1)
  - Pulmonary embolism [None]
